FAERS Safety Report 20090192 (Version 5)
Quarter: 2022Q1

REPORT INFORMATION
  Report Type: Report from Study
  Country: JP (occurrence: JP)
  Receive Date: 20211119
  Receipt Date: 20220124
  Transmission Date: 20220423
  Serious: Yes (Hospitalization)
  Sender: FDA-Public Use
  Company Number: JP-NOVARTISPH-NVSJ2021JP016863

PATIENT
  Age: 62 Year
  Sex: Female
  Weight: 41.9 kg

DRUGS (15)
  1. COSENTYX [Suspect]
     Active Substance: SECUKINUMAB
     Indication: Ankylosing spondylitis
     Dosage: 150 MG, QW
     Route: 058
     Dates: start: 20190227, end: 20190327
  2. COSENTYX [Suspect]
     Active Substance: SECUKINUMAB
     Dosage: 150 MG, 4W
     Route: 058
     Dates: start: 20190424, end: 20201118
  3. COSENTYX [Suspect]
     Active Substance: SECUKINUMAB
  4. BETAHISTINE MESILATE [Suspect]
     Active Substance: BETAHISTINE MESILATE
     Indication: Dizziness
     Dosage: UNK
     Route: 048
     Dates: start: 20200610
  5. CALONAL [Concomitant]
     Active Substance: ACETAMINOPHEN
     Indication: Ankylosing spondylitis
     Dosage: UNK
     Route: 048
     Dates: start: 20181031
  6. LOXOPROFEN [Concomitant]
     Active Substance: LOXOPROFEN
     Indication: Ankylosing spondylitis
     Dosage: UNK
     Route: 048
     Dates: start: 20180921
  7. RABEPRAZOLE [Concomitant]
     Active Substance: RABEPRAZOLE
     Indication: Product used for unknown indication
     Dosage: UNK
     Route: 048
     Dates: start: 20180406
  8. REBAMIPIDE [Concomitant]
     Active Substance: REBAMIPIDE
     Indication: Product used for unknown indication
     Dosage: UNK
     Route: 048
     Dates: start: 20180921
  9. CYMBALTA [Concomitant]
     Active Substance: DULOXETINE HYDROCHLORIDE
     Indication: Ankylosing spondylitis
     Dosage: UNK
     Route: 048
     Dates: start: 20190315
  10. REMERON [Concomitant]
     Active Substance: MIRTAZAPINE
     Indication: Ankylosing spondylitis
     Dosage: UNK
     Route: 048
     Dates: start: 20200203
  11. AZULFIDINE EN-TABS [Concomitant]
     Active Substance: SULFASALAZINE
     Indication: Ankylosing spondylitis
     Dosage: UNK
     Route: 065
     Dates: start: 20180406
  12. CALCIUM ASPARTATE [Concomitant]
     Active Substance: CALCIUM ASPARTATE
     Indication: Osteoporosis
     Dosage: UNK
     Route: 065
     Dates: start: 20200625
  13. DOMPERIDONE [Concomitant]
     Active Substance: DOMPERIDONE
     Indication: Constipation
     Dosage: UNK
     Route: 065
     Dates: start: 20190422, end: 20191002
  14. BISACODYL [Concomitant]
     Active Substance: BISACODYL
     Indication: Constipation
     Dosage: UNK
     Route: 054
     Dates: start: 20200116
  15. MAGNESIUM OXIDE [Concomitant]
     Active Substance: MAGNESIUM OXIDE
     Indication: Constipation
     Dosage: UNK
     Route: 065
     Dates: start: 20200116

REACTIONS (3)
  - Constipation [Recovering/Resolving]
  - Osteoporosis [Not Recovered/Not Resolved]
  - Dizziness [Recovering/Resolving]

NARRATIVE: CASE EVENT DATE: 20200117
